FAERS Safety Report 18172346 (Version 2)
Quarter: 2020Q3

REPORT INFORMATION
  Report Type: Report from Study
  Country: US (occurrence: US)
  Receive Date: 20200819
  Receipt Date: 20200914
  Transmission Date: 20201103
  Serious: Yes (Other)
  Sender: FDA-Public Use
  Company Number: US-MYLANLABS-2020M1072328

PATIENT
  Age: 21 Year
  Sex: Male
  Weight: 65.3 kg

DRUGS (15)
  1. DOK [Concomitant]
     Active Substance: DOCUSATE SODIUM
     Dosage: 100 MILLIGRAM, BID
     Route: 048
     Dates: start: 20200610, end: 20200908
  2. CLOZAPINE. [Suspect]
     Active Substance: CLOZAPINE
     Dosage: 50 MILLIGRAM, PM
     Route: 048
     Dates: start: 20200814
  3. MAPAP [Concomitant]
     Active Substance: ACETAMINOPHEN
     Indication: PAIN
     Dosage: 650 MILLIGRAM, QID
     Route: 048
     Dates: start: 20190717, end: 20190717
  4. DESMOPRESIN [Concomitant]
     Active Substance: DESMOPRESSIN
     Dosage: 0.2 MILLIGRAM, QD
     Route: 048
     Dates: start: 20200602, end: 20200822
  5. DEPAKOTE [Suspect]
     Active Substance: DIVALPROEX SODIUM
     Indication: PRODUCT USED FOR UNKNOWN INDICATION
     Dosage: 500 MILLIGRAM, QD
     Route: 048
     Dates: start: 20200602
  6. MI?ACID [Concomitant]
     Indication: DYSPEPSIA
     Dosage: 200?200?20 MG/ 5 ML 20 ML EVERY 4 HOUR AS NEEDED
     Route: 048
     Dates: start: 20190717, end: 20190717
  7. POLYETHYLENE GLYCOL [Concomitant]
     Active Substance: POLYETHYLENE GLYCOLS
     Dosage: UNK UNK, BID
     Route: 048
     Dates: start: 20200622, end: 20200723
  8. IBUPROFEN. [Concomitant]
     Active Substance: IBUPROFEN
     Dosage: 200 MILLIGRAM, QD
     Route: 048
     Dates: start: 20200813, end: 20200813
  9. NALTREXONE [Concomitant]
     Active Substance: NALTREXONE
     Dosage: 50 MILLIGRAM, QD
     Route: 048
     Dates: start: 20200605, end: 20200903
  10. LORATADINE. [Concomitant]
     Active Substance: LORATADINE
     Dosage: 10 MILLIGRAM, QD
     Route: 048
     Dates: start: 20200605, end: 20200831
  11. PRAZOSIN HYDROCHLORIDE. [Concomitant]
     Active Substance: PRAZOSIN HYDROCHLORIDE
     Dosage: 2 MILLIGRAM, QD
     Route: 048
     Dates: start: 20200714, end: 20200813
  12. CLOZAPINE. [Suspect]
     Active Substance: CLOZAPINE
     Indication: PRODUCT USED FOR UNKNOWN INDICATION
     Dosage: UNK
  13. DEPAKOTE [Suspect]
     Active Substance: DIVALPROEX SODIUM
     Dosage: 250 MILLIGRAM
     Route: 048
  14. TOLNAFTATE. [Concomitant]
     Active Substance: TOLNAFTATE
     Dosage: 1 PERCENT, BID
     Route: 061
     Dates: start: 20200511, end: 20200810
  15. VITAMIN D3 [Concomitant]
     Active Substance: CHOLECALCIFEROL
     Dosage: 20 MICROGRAM, QD
     Route: 048
     Dates: start: 20200630, end: 20200829

REACTIONS (1)
  - Neutropenia [Recovering/Resolving]

NARRATIVE: CASE EVENT DATE: 20200729
